FAERS Safety Report 22206820 (Version 2)
Quarter: 2023Q2

REPORT INFORMATION
  Report Type: Report from Study
  Country: US (occurrence: US)
  Receive Date: 20230413
  Receipt Date: 20230417
  Transmission Date: 20230721
  Serious: No
  Sender: FDA-Public Use
  Company Number: US-002147023-NVSC2023US084800

PATIENT
  Sex: Male

DRUGS (1)
  1. MAYZENT [Suspect]
     Active Substance: SIPONIMOD
     Indication: Multiple sclerosis
     Dosage: 2 MG, QD, TAKE 1 TABLET BY MOUTH
     Route: 048

REACTIONS (3)
  - Memory impairment [Unknown]
  - Gait disturbance [Unknown]
  - Product dose omission issue [Unknown]
